FAERS Safety Report 4664355-5 (Version None)
Quarter: 2005Q2

REPORT INFORMATION
  Report Type: 
  Country: None (occurrence: None)
  Receive Date: 20050516
  Receipt Date: 20050516
  Transmission Date: 20051028
  Serious: Yes (Hospitalization, Other)
  Sender: FDA-Public Use
  Company Number: None

PATIENT
  Sex: Male
  Weight: 69 kg

DRUGS (1)
  1. INTERERFERON-ALPHA [Suspect]
     Dosage: 9.0 MU SC 3X/WEEK. CYCLE = 4 WEEKS
     Route: 058
     Dates: start: 20041117

REACTIONS (2)
  - DUODENAL ULCER [None]
  - GASTROINTESTINAL DISORDER [None]
